FAERS Safety Report 25155785 (Version 2)
Quarter: 2025Q2

REPORT INFORMATION
  Report Type: Report from Study
  Country: US (occurrence: US)
  Receive Date: 20250403
  Receipt Date: 20250513
  Transmission Date: 20250716
  Serious: Yes (Hospitalization, Other)
  Sender: XERIS PHARMACEUTICALS
  Company Number: US-BRIAN CONNER SVP QUALITY AND CHIEF COMPLIANCE OFFICER-2025XER00200

PATIENT
  Age: 70 Year
  Sex: Female

DRUGS (1)
  1. KEVEYIS [Suspect]
     Active Substance: DICHLORPHENAMIDE
     Indication: Paralysis
     Dosage: 1 TABLET (50 MG), 1X/DAY
     Route: 048
     Dates: start: 20250319, end: 20250319

REACTIONS (11)
  - Unresponsive to stimuli [Recovering/Resolving]
  - Feeling jittery [Recovering/Resolving]
  - Mental status changes [Recovering/Resolving]
  - Homicidal ideation [Recovering/Resolving]
  - Paralysis [Recovering/Resolving]
  - Speech disorder [Recovering/Resolving]
  - Blood pressure increased [Recovering/Resolving]
  - Anger [Recovering/Resolving]
  - Feeling abnormal [Recovering/Resolving]
  - Muscle spasms [Recovering/Resolving]
  - Tremor [Recovering/Resolving]

NARRATIVE: CASE EVENT DATE: 20250319
